FAERS Safety Report 4309742-X (Version None)
Quarter: 2004Q1

REPORT INFORMATION
  Report Type: 
  Country: None (occurrence: None)
  Receive Date: 20040301
  Receipt Date: 20040220
  Transmission Date: 20041129
  Serious: Yes (Death, Other)
  Sender: FDA-Public Use
  Company Number: USA-2002-0003834

PATIENT
  Age: 31 Year
  Sex: Male
  Weight: 90.7 kg

DRUGS (19)
  1. OXYCONTIN [Suspect]
     Indication: PAIN
     Dosage: SEE IMAGE
     Route: 048
     Dates: start: 20010215, end: 20011226
  2. OXYCONTIN [Suspect]
     Indication: PAIN
     Dosage: SEE IMAGE
     Route: 048
     Dates: start: 20001101
  3. PERCOCET [Concomitant]
  4. CYCLOBENZAPRINE HCL [Concomitant]
  5. ROXICODONE [Concomitant]
  6. CELEXA [Concomitant]
  7. NEURONTIN [Concomitant]
  8. AMBIEN [Concomitant]
  9. SOMA [Concomitant]
  10. MEDROL [Concomitant]
  11. RESTORIL [Concomitant]
  12. TRAZOSONE (TRAZODONE) [Concomitant]
  13. DEMEROL [Concomitant]
  14. PHENERGAN ^WYETH-AYEST^ (PROMETHAZINE HYDROCHLORIDE) [Concomitant]
  15. VICODIN [Concomitant]
  16. VIOXX [Concomitant]
  17. CELESTONE [Concomitant]
  18. MEPROZINE (PROMETHAZINE, PETHIDINE) [Concomitant]
  19. TEMAZEPAM [Concomitant]

REACTIONS (51)
  - ABNORMAL BEHAVIOUR [None]
  - AGGRESSION [None]
  - AORTIC ATHEROSCLEROSIS [None]
  - ATELECTASIS [None]
  - BACK PAIN [None]
  - BRAIN OEDEMA [None]
  - BRONCHOPNEUMONIA [None]
  - CARDIOMEGALY [None]
  - CONDITION AGGRAVATED [None]
  - CONFUSIONAL STATE [None]
  - CONSTIPATION [None]
  - CONVULSION [None]
  - CORONARY ARTERY ATHEROSCLEROSIS [None]
  - CYANOSIS [None]
  - DEPRESSED LEVEL OF CONSCIOUSNESS [None]
  - DEPRESSION [None]
  - DRUG ABUSER [None]
  - DRUG DEPENDENCE [None]
  - DRUG INEFFECTIVE [None]
  - DRUG WITHDRAWAL SYNDROME [None]
  - DYSPNOEA [None]
  - EMOTIONAL DISTRESS [None]
  - FLUID RETENTION [None]
  - GASTROENTERITIS [None]
  - HAEMATEMESIS [None]
  - HEPATIC CONGESTION [None]
  - HEPATIC STEATOSIS [None]
  - HEPATOMEGALY [None]
  - HYPOAESTHESIA [None]
  - INFLUENZA LIKE ILLNESS [None]
  - INSOMNIA [None]
  - LIVEDO RETICULARIS [None]
  - LOSS OF CONSCIOUSNESS [None]
  - LUNG NEOPLASM [None]
  - LYMPHOID TISSUE HYPERPLASIA [None]
  - MEDICATION ERROR [None]
  - MUSCLE SPASMS [None]
  - OEDEMA [None]
  - OVERDOSE [None]
  - PAIN [None]
  - PARAESTHESIA [None]
  - PULMONARY CONGESTION [None]
  - PULMONARY VASCULAR DISORDER [None]
  - PULSE ABSENT [None]
  - REFUSAL OF TREATMENT BY PATIENT [None]
  - RENAL DISORDER [None]
  - RESPIRATORY ARREST [None]
  - SPLEEN CONGESTION [None]
  - SPLENOMEGALY [None]
  - URINARY RETENTION [None]
  - VENTRICULAR HYPERTROPHY [None]
